FAERS Safety Report 16944546 (Version 2)
Quarter: 2019Q4

REPORT INFORMATION
  Report Type: Spontaneous
  Country: DE (occurrence: DE)
  Receive Date: 20191022
  Receipt Date: 20191031
  Transmission Date: 20200122
  Serious: Yes (Hospitalization)
  Sender: FDA-Public Use
  Company Number: DE-TORRENT-00015766

PATIENT
  Age: 15 Year
  Sex: Female
  Weight: 31 kg

DRUGS (2)
  1. LAMOTRIGINE. [Suspect]
     Active Substance: LAMOTRIGINE
     Indication: EPILEPSY
     Dosage: DAILY DOSE: 250 MG MILLGRAM(S) EVERY DAYS 2 SEPARATED DOSES
     Route: 048
  2. PANTOPRAZOL [Concomitant]
     Active Substance: PANTOPRAZOLE SODIUM
     Indication: GASTROINTESTINAL HAEMORRHAGE
     Dosage: DAILY DOSE: 20 MG MILLGRAM(S) EVERY DAYS
     Route: 048

REACTIONS (3)
  - Vomiting [Unknown]
  - Drug ineffective [Unknown]
  - Seizure [Unknown]

NARRATIVE: CASE EVENT DATE: 20181112
